FAERS Safety Report 7469162-6 (Version None)
Quarter: 2011Q2

REPORT INFORMATION
  Report Type: 
  Country: None (occurrence: None)
  Receive Date: 20110510
  Receipt Date: 20110329
  Transmission Date: 20111010
  Serious: Yes (Hospitalization, Other)
  Sender: FDA-Public Use
  Company Number: US-BAYER-201028842NA

PATIENT
  Age: 29 Year
  Sex: Female
  Weight: 72.562 kg

DRUGS (14)
  1. RANITIDINE [Concomitant]
     Dosage: 150 MG, QD
     Route: 048
     Dates: start: 20060803
  2. YAZ [Suspect]
     Indication: ACNE
     Dosage: UNK
     Dates: start: 20060801, end: 20070101
  3. DIPHENHYDRAMINE [Concomitant]
     Dosage: 50 MG, QD
     Route: 048
     Dates: start: 20060803
  4. OMNICEF [Concomitant]
     Dosage: 300 MG, QD
     Route: 048
     Dates: start: 20040423
  5. PRILOSEC [Concomitant]
     Dosage: 20 MG, QD
     Route: 048
     Dates: start: 20060916
  6. YASMIN [Suspect]
     Indication: CONTRACEPTION
     Dosage: UNK
     Dates: start: 20081101, end: 20081201
  7. YAZ [Suspect]
     Indication: CONTRACEPTION
     Dosage: UNK
     Dates: start: 20080101, end: 20081201
  8. YASMIN [Suspect]
     Indication: ACNE
     Dosage: UNK
     Route: 048
     Dates: start: 20060801, end: 20070101
  9. PREDNISONE [Concomitant]
     Dosage: 20 MG, QD
     Route: 048
     Dates: start: 20060803
  10. AMOXICILLIN [Concomitant]
  11. CIPROFLOXACIN [Concomitant]
     Dosage: 500 MG, TID
     Route: 048
     Dates: start: 20081125
  12. GENTAMICIN [Concomitant]
     Dosage: 3 MG, UNK
     Route: 047
     Dates: start: 20061212
  13. NICOTINE [Concomitant]
     Dosage: 14 MG, QD
     Route: 061
     Dates: start: 20060916
  14. PRILOSEC [Concomitant]
     Dosage: UNK
     Dates: start: 20061212

REACTIONS (4)
  - HEPATIC NEOPLASM [None]
  - CHOLECYSTITIS CHRONIC [None]
  - CHOLELITHIASIS [None]
  - FOCAL NODULAR HYPERPLASIA [None]
